FAERS Safety Report 6801341-0 (Version None)
Quarter: 2010Q2

REPORT INFORMATION
  Report Type: 
  Country: None (occurrence: None)
  Receive Date: 20100629
  Receipt Date: 20100623
  Transmission Date: 20101027
  Serious: Yes (Death, Life-Threatening, Hospitalization, Other)
  Sender: FDA-Public Use
  Company Number: A0840292A

PATIENT
  Age: 71 Year
  Sex: Female

DRUGS (5)
  1. ADVAIR DISKUS 100/50 [Suspect]
     Indication: CHRONIC OBSTRUCTIVE PULMONARY DISEASE
     Dosage: 1PUFF UNKNOWN
     Route: 055
  2. VENTOLIN [Concomitant]
  3. FLONASE [Concomitant]
  4. FLOVENT [Concomitant]
  5. ZANTAC [Concomitant]

REACTIONS (3)
  - CARDIAC FAILURE [None]
  - DEATH [None]
  - DYSPNOEA [None]
